FAERS Safety Report 21315214 (Version 1)
Quarter: 2022Q3

REPORT INFORMATION
  Report Type: Spontaneous
  Country: US (occurrence: US)
  Receive Date: 20220909
  Receipt Date: 20220909
  Transmission Date: 20221026
  Serious: No
  Sender: FDA-Public Use
  Company Number: US-TAKEDA-2022TUS062633

PATIENT
  Sex: Female
  Weight: 114.29 kg

DRUGS (1)
  1. HYQVIA [Suspect]
     Active Substance: HUMAN IMMUNOGLOBULIN G\HYALURONIDASE RECOMBINANT HUMAN
     Indication: Hypergammaglobulinaemia
     Dosage: 40 GRAM, MONTHLY
     Route: 058
     Dates: start: 202102

REACTIONS (3)
  - Product storage error [Unknown]
  - Product use in unapproved indication [Unknown]
  - No adverse event [Unknown]
